FAERS Safety Report 6787979-8 (Version None)
Quarter: 2010Q2

REPORT INFORMATION
  Report Type: 
  Country: None (occurrence: None)
  Receive Date: 20100623
  Receipt Date: 20071204
  Transmission Date: 20101027
  Serious: No
  Sender: FDA-Public Use
  Company Number: US-PFIZER INC-2007101887

PATIENT
  Age: 60 Year
  Sex: Male
  Weight: 109.1 kg

DRUGS (1)
  1. SUTENT [Suspect]
     Indication: RENAL CANCER
     Route: 048
     Dates: start: 20071107

REACTIONS (3)
  - DIARRHOEA [None]
  - EPISTAXIS [None]
  - FATIGUE [None]
